FAERS Safety Report 19259248 (Version 2)
Quarter: 2021Q2

REPORT INFORMATION
  Report Type: Other
  Country: US (occurrence: US)
  Receive Date: 20210514
  Receipt Date: 20210610
  Transmission Date: 20210717
  Serious: No
  Sender: FDA-Public Use
  Company Number: US-ROCHE-2827939

PATIENT
  Age: 59 Year
  Sex: Female
  Weight: 65.83 kg

DRUGS (4)
  1. CELECOXIB. [Concomitant]
     Active Substance: CELECOXIB
     Indication: BACK PAIN
     Dosage: ONE CAPSULE UP TO TWO TIMES DAILY AS NEEDED
     Route: 048
  2. OCREVUS [Suspect]
     Active Substance: OCRELIZUMAB
     Indication: RELAPSING-REMITTING MULTIPLE SCLEROSIS
     Dosage: 300 MG ONCE IN 2 WEEKS
     Route: 042
     Dates: start: 202004
  3. ESTRADIOL. [Concomitant]
     Active Substance: ESTRADIOL
     Dosage: 1 UNIT NOT REPORTED
     Route: 062
  4. KLONOPIN [Suspect]
     Active Substance: CLONAZEPAM
     Indication: MUSCLE CONTRACTIONS INVOLUNTARY
     Dosage: (1/2) OF A 0.5 MG TABLET AT NIGHT ;ONGOING: YES
     Route: 048

REACTIONS (8)
  - Anxiety [Recovered/Resolved]
  - Heart rate increased [Recovered/Resolved]
  - Off label use [Unknown]
  - Headache [Recovered/Resolved]
  - Aphasia [Unknown]
  - COVID-19 [Recovering/Resolving]
  - Dyspnoea [Recovered/Resolved]
  - Dysphonia [Recovered/Resolved]

NARRATIVE: CASE EVENT DATE: 20210412
